FAERS Safety Report 11596670 (Version 1)
Quarter: 2015Q4

REPORT INFORMATION
  Report Type: Spontaneous
  Country: JP (occurrence: JP)
  Receive Date: 20151006
  Receipt Date: 20151006
  Transmission Date: 20160304
  Serious: Yes (Hospitalization, Other)
  Sender: FDA-Public Use
  Company Number: PHHY2014JP129233

PATIENT
  Sex: Female
  Weight: 42 kg

DRUGS (13)
  1. ATROPIN SULFATE [Concomitant]
     Indication: CHOLINERGIC SYNDROME
     Dosage: 12 MG, QD
     Route: 065
  2. TAZOBACTAM [Concomitant]
     Active Substance: TAZOBACTAM
     Indication: PNEUMONIA ASPIRATION
     Route: 065
  3. YOKUKANSAN [Concomitant]
     Active Substance: HERBALS
     Indication: RESTLESSNESS
     Dosage: 2.5 G, TID
     Route: 065
  4. QUETIAPINE FUMARATE. [Concomitant]
     Active Substance: QUETIAPINE FUMARATE
     Dosage: 50 MG, UNK
     Route: 065
  5. QUETIAPINE FUMARATE. [Concomitant]
     Active Substance: QUETIAPINE FUMARATE
     Dosage: 75 MG (25 MG, 3 TIMES A DAY ),UNK
     Route: 065
  6. MAGNESIUM OXIDE. [Concomitant]
     Active Substance: MAGNESIUM OXIDE
     Indication: PRODUCT USED FOR UNKNOWN INDICATION
     Route: 065
  7. LINEZOLID. [Concomitant]
     Active Substance: LINEZOLID
     Indication: PNEUMONIA ASPIRATION
     Route: 065
  8. RIVASTACH [Suspect]
     Active Substance: RIVASTIGMINE
     Indication: DEMENTIA ALZHEIMER^S TYPE
     Dosage: 9.5 MG, QD (18 MG RIVASTIGMINE BASE)
     Route: 062
  9. UBRETID [Concomitant]
     Active Substance: DISTIGMINE BROMIDE
     Indication: POST PROCEDURAL URINE LEAK
     Dosage: 5 MG, UNK
     Route: 048
  10. YOKUKANSAN [Concomitant]
     Active Substance: HERBALS
     Dosage: UNK
     Route: 065
  11. YOKUKANSAN [Concomitant]
     Active Substance: HERBALS
     Indication: AGGRESSION
     Dosage: 2.5 G, BID
     Route: 065
  12. RIVASTACH [Suspect]
     Active Substance: RIVASTIGMINE
     Dosage: 9.5 MG, QD (18 MG RIVASTIGMINE BASE)
     Route: 062
  13. QUETIAPINE FUMARATE. [Concomitant]
     Active Substance: QUETIAPINE FUMARATE
     Indication: PRODUCT USED FOR UNKNOWN INDICATION
     Dosage: 50 MG, UNK
     Route: 065

REACTIONS (9)
  - Decubitus ulcer [Unknown]
  - Pneumonia aspiration [Unknown]
  - Diarrhoea [Recovered/Resolved]
  - Acute respiratory failure [Recovering/Resolving]
  - Cholinergic syndrome [Recovered/Resolved]
  - Dysuria [Unknown]
  - Hiatus hernia [Unknown]
  - Pneumonia [Unknown]
  - Nutritional condition abnormal [Unknown]
